FAERS Safety Report 6142704-9 (Version None)
Quarter: 2009Q2

REPORT INFORMATION
  Report Type: 
  Country: None (occurrence: None)
  Receive Date: 20090403
  Receipt Date: 20090331
  Transmission Date: 20091009
  Serious: Yes (Hospitalization, Other)
  Sender: FDA-Public Use
  Company Number: BE-BRISTOL-MYERS SQUIBB COMPANY-14563522

PATIENT
  Age: 69 Year
  Sex: Male
  Weight: 77 kg

DRUGS (8)
  1. CETUXIMAB [Suspect]
     Indication: HEAD AND NECK CANCER
     Dosage: RECENT INFUSION ON 13JAN09
     Route: 042
     Dates: start: 20080828
  2. CISPLATIN [Suspect]
     Indication: HEAD AND NECK CANCER
     Dosage: RECENT INF ON 30OCT08; LAST CYCLE OF TREATMENT IN JAN09.
     Route: 042
     Dates: start: 20080828
  3. CARBOPLATIN [Suspect]
     Indication: HEAD AND NECK CANCER
     Dosage: RECENT INF ON 23JAN09; LAST CYCLE OF TREATMENT IN JAN09.
     Route: 042
     Dates: start: 20081127
  4. DOCETAXEL [Suspect]
     Indication: HEAD AND NECK CANCER
     Dosage: RECENT INF ON 30OCT2008; LAST CYCLE OF TREATMENT IN JAN09.
     Route: 042
     Dates: start: 20080828
  5. FLUOROURACIL [Suspect]
     Indication: HEAD AND NECK CANCER
     Dosage: RECENT INF ON 03NOV2008; LAST CYCLE OF TREATMENT IN JAN09.
     Route: 042
     Dates: start: 20080828
  6. RADIOTHERAPY [Suspect]
     Indication: HEAD AND NECK CANCER
     Dosage: 1 DF- 70 GY.  RECENT RADIOTHERAPY ON 16JAN09
     Dates: start: 20081127
  7. ZANTAC [Concomitant]
     Indication: PROPHYLAXIS AGAINST GASTROINTESTINAL ULCER
     Route: 048
     Dates: start: 20090107, end: 20090316
  8. PRIMPERAN [Concomitant]
     Indication: PROPHYLAXIS OF NAUSEA AND VOMITING
     Route: 048

REACTIONS (2)
  - GASTRIC HAEMORRHAGE [None]
  - GASTRIC ULCER [None]
